FAERS Safety Report 10079493 (Version 2)
Quarter: 2014Q2

REPORT INFORMATION
  Report Type: Spontaneous
  Country: US (occurrence: US)
  Receive Date: 20140415
  Receipt Date: 20140415
  Transmission Date: 20141212
  Serious: Yes (Other)
  Sender: FDA-Public Use
  Company Number: US-PFIZER INC-2014089169

PATIENT
  Age: 80 Year
  Sex: Female
  Weight: 72.56 kg

DRUGS (5)
  1. LYRICA [Suspect]
     Indication: PIRIFORMIS SYNDROME
     Dosage: 25 MG, 2X/DAY
     Dates: start: 201403
  2. LYRICA [Suspect]
     Indication: NEURALGIA
     Dosage: 50 MG, 2X/DAY
  3. LYRICA [Suspect]
     Indication: BACK PAIN
     Dosage: 100 MG, 2X/DAY
     Dates: end: 2014
  4. LYRICA [Suspect]
     Indication: SPINAL COLUMN STENOSIS
  5. OXYCONTIN [Concomitant]
     Dosage: 20 MG, 3X/DAY

REACTIONS (5)
  - Muscular weakness [Unknown]
  - Gait disturbance [Unknown]
  - Loss of control of legs [Unknown]
  - Drug ineffective [Unknown]
  - Fall [Unknown]
